FAERS Safety Report 5388925-4 (Version None)
Quarter: 2007Q3

REPORT INFORMATION
  Report Type: 
  Country: None (occurrence: None)
  Receive Date: 20070717
  Receipt Date: 20070710
  Transmission Date: 20080115
  Serious: Yes (Other)
  Sender: FDA-Public Use
  Company Number: PHNR2007AU01327

PATIENT
  Age: 1 Year
  Sex: Female

DRUGS (1)
  1. VOLTAREN [Suspect]
     Route: 048
     Dates: start: 20070705, end: 20070705

REACTIONS (1)
  - ACCIDENTAL DRUG INTAKE BY CHILD [None]
